FAERS Safety Report 15330170 (Version 1)
Quarter: 2018Q3

REPORT INFORMATION
  Report Type: Spontaneous
  Country: US (occurrence: US)
  Receive Date: 20180824
  Receipt Date: 20180824
  Transmission Date: 20181010
  Serious: Yes (Other)
  Sender: FDA-Public Use
  Company Number: None

PATIENT
  Age: 51 Year
  Sex: Female
  Weight: 47.7 kg

DRUGS (8)
  1. QUDEXY XR [Concomitant]
     Active Substance: TOPIRAMATE
  2. XANAX [Concomitant]
     Active Substance: ALPRAZOLAM
  3. OXYCODONE [Concomitant]
     Active Substance: OXYCODONE
  4. TIZANIDINE. [Concomitant]
     Active Substance: TIZANIDINE
  5. FIORICET [Concomitant]
     Active Substance: ACETAMINOPHEN\BUTALBITAL\CAFFEINE
  6. ARIMIDEX [Concomitant]
     Active Substance: ANASTROZOLE
  7. PROLIA [Concomitant]
     Active Substance: DENOSUMAB
  8. BACLOFEN 20 MG TABLET [Suspect]
     Active Substance: BACLOFEN
     Indication: MUSCLE SPASMS
     Dosage: ?          QUANTITY:1 TABLET(S);?
     Route: 048
     Dates: end: 20180824

REACTIONS (2)
  - Hypoacusis [None]
  - Tinnitus [None]
